FAERS Safety Report 7813930-5 (Version None)
Quarter: 2011Q4

REPORT INFORMATION
  Report Type: 
  Country: None (occurrence: None)
  Receive Date: 20111014
  Receipt Date: 20111007
  Transmission Date: 20120403
  Serious: Yes (Other)
  Sender: FDA-Public Use
  Company Number: GB-PFIZER INC-2011240695

PATIENT
  Age: 62 Year
  Sex: Male

DRUGS (4)
  1. LORATADINE [Concomitant]
  2. VIAGRA [Suspect]
  3. LANSOPRAZOLE [Concomitant]
  4. FLUTICASONE PROPIONATE [Concomitant]
     Route: 045

REACTIONS (1)
  - MACULAR HOLE [None]
